FAERS Safety Report 5225325-1 (Version None)
Quarter: 2007Q1

REPORT INFORMATION
  Report Type: 
  Country: None (occurrence: None)
  Receive Date: 20070131
  Receipt Date: 20070123
  Transmission Date: 20070707
  Serious: Yes (Other)
  Sender: FDA-Public Use
  Company Number: US-BRISTOL-MYERS SQUIBB COMPANY-13653134

PATIENT
  Age: 5 Decade
  Sex: Female
  Weight: 91 kg

DRUGS (3)
  1. GLUCOPHAGE [Suspect]
     Indication: DIABETES MELLITUS
     Dosage: DOSE;INCREASED FROM 500MG.
  2. LANTUS [Concomitant]
  3. AMARYL [Concomitant]

REACTIONS (1)
  - MENSTRUAL DISORDER [None]
